FAERS Safety Report 8523709-7 (Version None)
Quarter: 2012Q2

REPORT INFORMATION
  Report Type: 
  Country: None (occurrence: None)
  Receive Date: 20120406
  Receipt Date: 20100712
  Transmission Date: 20120825
  Serious: Yes (Other)
  Sender: FDA-Public Use
  Company Number: PHHY2010US32745

PATIENT
  Age: 57 Year
  Sex: Female
  Weight: 80.5 kg

DRUGS (4)
  1. ALLOPURINOL [Concomitant]
  2. HYDREA [Concomitant]
  3. IBUPROFEN (ADVIL) [Concomitant]
  4. TASIGNA [Suspect]
     Indication: CHRONIC MYELOID LEUKAEMIA
     Dosage: 400 MG, BID, ORAL
     Route: 048
     Dates: start: 20091119, end: 20100217

REACTIONS (2)
  - CHRONIC MYELOID LEUKAEMIA [None]
  - WHITE BLOOD CELL COUNT INCREASED [None]
